FAERS Safety Report 14867664 (Version 1)
Quarter: 2018Q2

REPORT INFORMATION
  Report Type: Spontaneous
  Country: KR (occurrence: KR)
  Receive Date: 20180508
  Receipt Date: 20180508
  Transmission Date: 20180711
  Serious: Yes (Death, Life-Threatening, Hospitalization)
  Sender: FDA-Public Use
  Company Number: KR-009507513-1511KOR006859

PATIENT
  Age: 51 Year
  Sex: Male
  Weight: 72.7 kg

DRUGS (2)
  1. CASPOFUNGIN ACETATE. [Suspect]
     Active Substance: CASPOFUNGIN ACETATE
     Indication: FUNGAEMIA
     Dosage: 75MG, DAILY DOSE (LOADING)
     Route: 042
     Dates: start: 20140829, end: 20140930
  2. CASPOFUNGIN ACETATE. [Suspect]
     Active Substance: CASPOFUNGIN ACETATE
     Indication: EVIDENCE BASED TREATMENT
     Dosage: 50 MG, DAILY DOSE (MAINTENANCE)
     Route: 042
     Dates: start: 20140829, end: 20140930

REACTIONS (2)
  - Off label use [Unknown]
  - Drug ineffective [Fatal]

NARRATIVE: CASE EVENT DATE: 20140927
